FAERS Safety Report 9110108 (Version 1)
Quarter: 2013Q1

REPORT INFORMATION
  Report Type: Spontaneous
  Country: IT (occurrence: IT)
  Receive Date: 20130222
  Receipt Date: 20130222
  Transmission Date: 20140127
  Serious: Yes (Other)
  Sender: FDA-Public Use
  Company Number: IT-B.I. PHARMACEUTICALS,INC./RIDGEFIELD-2013-IT-00112IT

PATIENT
  Age: 81 Year
  Sex: Female

DRUGS (5)
  1. CATAPRESAN [Suspect]
     Indication: HYPERTENSION
     Route: 062
     Dates: start: 20121029, end: 20121104
  2. GLIBOMET [Concomitant]
     Dosage: STRENGTH: 400MG + 2.5MG
  3. ARLEVERTAN [Concomitant]
     Dosage: STRENGTH: 20MG/40MG
  4. GLUCOBAY [Concomitant]
  5. METFORMINA ACTAVIS [Concomitant]

REACTIONS (4)
  - Hypertensive crisis [Recovered/Resolved]
  - Balance disorder [Recovered/Resolved]
  - Therapeutic response decreased [Recovered/Resolved]
  - Headache [Recovered/Resolved]
